FAERS Safety Report 4723576-3 (Version None)
Quarter: 2005Q3

REPORT INFORMATION
  Report Type: 
  Country: None (occurrence: None)
  Receive Date: 20050719
  Receipt Date: 20050708
  Transmission Date: 20060218
  Serious: Yes (Hospitalization)
  Sender: FDA-Public Use
  Company Number: ZLBIGIV/05/17/USA

PATIENT
  Sex: Male

DRUGS (1)
  1. CARIMUNE [Suspect]
     Indication: DRUG USE FOR UNKNOWN INDICATION
     Dosage: ONCE, I.V.
     Route: 042
     Dates: start: 20050708, end: 20050708

REACTIONS (6)
  - INFUSION RELATED REACTION [None]
  - PRURITUS [None]
  - RASH ERYTHEMATOUS [None]
  - RASH MACULO-PAPULAR [None]
  - URTICARIA [None]
  - WHEEZING [None]
